FAERS Safety Report 24070660 (Version 1)
Quarter: 2024Q3

REPORT INFORMATION
  Report Type: Spontaneous
  Country: CN (occurrence: CN)
  Receive Date: 20240710
  Receipt Date: 20240710
  Transmission Date: 20241017
  Serious: No
  Sender: ROCHE
  Company Number: CN-ROCHE-3532437

PATIENT
  Age: 40 Year
  Sex: Female

DRUGS (4)
  1. ALECENSA [Suspect]
     Active Substance: ALECTINIB HYDROCHLORIDE
     Indication: Lung adenocarcinoma
     Route: 048
     Dates: start: 20200309
  2. ALECENSA [Suspect]
     Active Substance: ALECTINIB HYDROCHLORIDE
     Indication: Metastases to central nervous system
  3. CRIZOTINIB [Concomitant]
     Active Substance: CRIZOTINIB
     Indication: Lung adenocarcinoma
  4. CRIZOTINIB [Concomitant]
     Active Substance: CRIZOTINIB
     Indication: Metastases to central nervous system

REACTIONS (6)
  - Syncope [Unknown]
  - Loss of consciousness [Unknown]
  - Urinary incontinence [Unknown]
  - Vomiting [Unknown]
  - Intracranial mass [Unknown]
  - Oedema [Unknown]

NARRATIVE: CASE EVENT DATE: 20201214
